FAERS Safety Report 5786729-1 (Version None)
Quarter: 2008Q2

REPORT INFORMATION
  Report Type: 
  Country: None (occurrence: None)
  Receive Date: 20080619
  Receipt Date: 20080604
  Transmission Date: 20081010
  Serious: Yes (Hospitalization)
  Sender: FDA-Public Use
  Company Number: 8033261

PATIENT
  Age: 14 Year
  Sex: Male

DRUGS (3)
  1. KEPPRA [Suspect]
     Indication: INTENTIONAL DRUG MISUSE
  2. LAMICTAL [Suspect]
     Indication: INTENTIONAL DRUG MISUSE
  3. PATADAY SOLUTION [Suspect]
     Dosage: OPHTHALMIC
     Route: 047

REACTIONS (2)
  - HOSPITALISATION [None]
  - SELF-MEDICATION [None]
